FAERS Safety Report 6972324-5 (Version None)
Quarter: 2010Q3

REPORT INFORMATION
  Report Type: 
  Country: None (occurrence: None)
  Receive Date: 20100909
  Receipt Date: 20100903
  Transmission Date: 20110219
  Serious: Yes (Death, Life-Threatening, Hospitalization)
  Sender: FDA-Public Use
  Company Number: DE-JNJFOC-20100708578

PATIENT
  Sex: Male
  Weight: 80 kg

DRUGS (6)
  1. SIMPONI [Suspect]
     Indication: RHEUMATOID ARTHRITIS
     Route: 058
  2. SIMVASTATIN [Concomitant]
     Indication: HYPERLIPIDAEMIA
     Route: 048
  3. ALLOPURINOL [Concomitant]
     Indication: HYPERURICAEMIA
     Route: 048
  4. CALCIUM AND VITAMIN D3 [Concomitant]
     Indication: OSTEOPOROSIS
     Route: 048
  5. FENISTIL [Concomitant]
     Indication: SEASONAL ALLERGY
     Route: 048
  6. METAMIZOL [Concomitant]
     Indication: RHEUMATOID ARTHRITIS
     Route: 048

REACTIONS (3)
  - PNEUMONIA [None]
  - RESPIRATORY FAILURE [None]
  - SEPTIC SHOCK [None]
